FAERS Safety Report 23455124 (Version 1)
Quarter: 2024Q1

REPORT INFORMATION
  Report Type: Spontaneous
  Country: IT (occurrence: IT)
  Receive Date: 20240130
  Receipt Date: 20240130
  Transmission Date: 20240410
  Serious: Yes (Other)
  Sender: FDA-Public Use
  Company Number: None

PATIENT

DRUGS (3)
  1. CYCLOPHOSPHAMIDE [Suspect]
     Active Substance: CYCLOPHOSPHAMIDE
     Indication: Breast cancer
     Dosage: 1008 MILLIGRAM, 3W
     Route: 042
     Dates: start: 20230928, end: 20230928
  2. EPIRUBICIN [Suspect]
     Active Substance: EPIRUBICIN
     Indication: Breast cancer
     Dosage: 151.2 MILLIGRAM, 3W
     Route: 042
     Dates: start: 20230928, end: 20230928
  3. PEMBROLIZUMAB [Suspect]
     Active Substance: PEMBROLIZUMAB
     Indication: Breast cancer
     Dosage: 200 MILLIGRAM, 3W
     Route: 042
     Dates: start: 20230921, end: 20230921

REACTIONS (4)
  - Cancer fatigue [Recovered/Resolved]
  - Paraesthesia [Recovering/Resolving]
  - Mucosal inflammation [Recovered/Resolved]
  - Abdominal pain upper [Recovered/Resolved]

NARRATIVE: CASE EVENT DATE: 20230929
